FAERS Safety Report 10151809 (Version 2)
Quarter: 2014Q2

REPORT INFORMATION
  Report Type: Report from Study
  Country: US (occurrence: US)
  Receive Date: 20140505
  Receipt Date: 20140505
  Transmission Date: 20141212
  Serious: Yes (Hospitalization)
  Sender: FDA-Public Use
  Company Number: US-BRISTOL-MYERS SQUIBB COMPANY-20643896

PATIENT
  Age: 56 Year
  Sex: Female
  Weight: 54.87 kg

DRUGS (14)
  1. IPILIMUMAB [Suspect]
     Indication: PANCREATIC CARCINOMA
     Dates: start: 20130829
  2. GEMCITABINE [Suspect]
     Indication: PANCREATIC CARCINOMA
     Dates: start: 20130829
  3. IBUPROFEN [Concomitant]
     Dates: start: 20130308
  4. CLONAZEPAM [Concomitant]
     Dates: start: 20130311
  5. DOCUSATE SODIUM + SENNA [Concomitant]
     Dates: start: 20130308
  6. GABAPENTIN [Concomitant]
     Dates: start: 20130211
  7. MORPHINE [Concomitant]
     Dates: start: 20130211
  8. LORAZEPAM [Concomitant]
     Dates: start: 20130211
  9. OMEPRAZOLE [Concomitant]
     Dates: start: 20130414
  10. POLYETHYLENE GLYCOL [Concomitant]
     Dates: start: 20130311
  11. POTASSIUM CHLORIDE [Concomitant]
     Dates: start: 20130308
  12. PROCHLORPERAZINE [Concomitant]
     Dates: start: 20130211
  13. SERTRALINE [Concomitant]
     Dates: start: 20140308
  14. TRAZODONE HCL [Concomitant]
     Dates: start: 20130308

REACTIONS (5)
  - Syncope [Unknown]
  - Hypokalaemia [Recovered/Resolved]
  - Ascites [Unknown]
  - Diarrhoea [Unknown]
  - Abdominal pain [Unknown]
